FAERS Safety Report 6071746-7 (Version None)
Quarter: 2009Q1

REPORT INFORMATION
  Report Type: 
  Country: None (occurrence: None)
  Receive Date: 20090209
  Receipt Date: 20090209
  Transmission Date: 20090719
  Serious: Yes (Hospitalization)
  Sender: FDA-Public Use
  Company Number: None

PATIENT
  Sex: Female
  Weight: 81.6475 kg

DRUGS (5)
  1. CARDIZEM [Suspect]
     Indication: BLOOD PRESSURE INCREASED
     Dosage: 180 MG ER DAILY ORAL
     Route: 048
     Dates: start: 20090117
  2. CARDIZEM [Suspect]
     Indication: TACHYCARDIA
     Dosage: 180 MG ER DAILY ORAL
     Route: 048
     Dates: start: 20090117
  3. MULTI-VITAMIN [Concomitant]
  4. CLARITIN [Concomitant]
  5. TOPROL-XL [Concomitant]

REACTIONS (6)
  - BLOOD PRESSURE INCREASED [None]
  - FEELING ABNORMAL [None]
  - HEART RATE INCREASED [None]
  - HYPOAESTHESIA [None]
  - NO THERAPEUTIC RESPONSE [None]
  - PALPITATIONS [None]
